FAERS Safety Report 6437954-8 (Version None)
Quarter: 2009Q4

REPORT INFORMATION
  Report Type: 
  Country: None (occurrence: None)
  Receive Date: 20091112
  Receipt Date: 20081021
  Transmission Date: 20100525
  Serious: No
  Sender: FDA-Public Use
  Company Number: US-ASTRAZENECA-2009UW15860

PATIENT
  Age: 45 Year
  Sex: Female

DRUGS (2)
  1. PRILOSEC OTC [Suspect]
     Indication: GASTROOESOPHAGEAL REFLUX DISEASE
     Dosage: 1 TABLET, 1 /DAY
     Route: 048
     Dates: start: 20080821, end: 20080825
  2. PRILOSEC OTC [Suspect]
     Dosage: 1 TABLET, 1 /DAY
     Route: 048
     Dates: end: 20081007

REACTIONS (2)
  - INAPPROPRIATE SCHEDULE OF DRUG ADMINISTRATION [None]
  - RASH MACULAR [None]
